FAERS Safety Report 5756922-2 (Version None)
Quarter: 2008Q2

REPORT INFORMATION
  Report Type: 
  Country: None (occurrence: None)
  Receive Date: 20080603
  Receipt Date: 20080529
  Transmission Date: 20081010
  Serious: Yes (Other)
  Sender: FDA-Public Use
  Company Number: B0522875A

PATIENT
  Age: 67 Year
  Sex: Female

DRUGS (1)
  1. NICABATE CQ 21MG [Suspect]
     Indication: DRUG WITHDRAWAL MAINTENANCE THERAPY
     Dosage: 1PAT PER DAY
     Route: 062
     Dates: start: 20080205, end: 20080214

REACTIONS (3)
  - AGGRESSION [None]
  - DEPRESSION [None]
  - IRRITABILITY [None]
